FAERS Safety Report 7523790-8 (Version None)
Quarter: 2011Q2

REPORT INFORMATION
  Report Type: 
  Country: None (occurrence: None)
  Receive Date: 20110603
  Receipt Date: 20110530
  Transmission Date: 20111010
  Serious: Yes (Life-Threatening)
  Sender: FDA-Public Use
  Company Number: PL-ASTRAZENECA-2011SE33336

PATIENT
  Age: 27 Year
  Sex: Female
  Weight: 51 kg

DRUGS (7)
  1. THIOPENTAL SODIUM [Concomitant]
     Indication: INDUCTION OF ANAESTHESIA
  2. NSAID [Concomitant]
  3. CORTICOSTEROIDS [Concomitant]
  4. PROPOFOL [Suspect]
     Indication: ANAESTHESIA
     Dosage: 4 TO 12 MG/KG/HR LASTING 6.5 HRS
     Route: 042
  5. SEVOFLURANE [Concomitant]
     Indication: INDUCTION OF ANAESTHESIA
  6. ACETAMINOPHEN [Concomitant]
  7. ROCURONIUM BROMIDE [Concomitant]
     Indication: INDUCTION OF ANAESTHESIA

REACTIONS (1)
  - PROPOFOL INFUSION SYNDROME [None]
